FAERS Safety Report 9767384 (Version 1)
Quarter: 2013Q4

REPORT INFORMATION
  Report Type: Spontaneous
  Country: IT (occurrence: None)
  Receive Date: 20131213
  Receipt Date: 20131213
  Transmission Date: 20140711
  Serious: Yes (Hospitalization)
  Sender: FDA-Public Use
  Company Number: SP07306

PATIENT
  Age: 74 Year
  Sex: Female

DRUGS (1)
  1. XIFAXAN [Suspect]
     Indication: DIARRHOEA
     Route: 048
     Dates: start: 20130421, end: 20130427

REACTIONS (2)
  - Face oedema [None]
  - Asthenia [None]
